FAERS Safety Report 4981792-X (Version None)
Quarter: 2006Q2

REPORT INFORMATION
  Report Type: 
  Country: None (occurrence: None)
  Receive Date: 20060425
  Receipt Date: 20060421
  Transmission Date: 20061013
  Serious: Yes (Other)
  Sender: FDA-Public Use
  Company Number: US-GLAXOSMITHKLINE-A0602833A

PATIENT
  Age: 59 Year
  Sex: Male

DRUGS (7)
  1. ESKALITH [Suspect]
     Dosage: 300MG THREE TIMES PER DAY
     Route: 048
     Dates: start: 20040301
  2. ZYPREXA [Concomitant]
  3. SINGULAIR [Concomitant]
  4. ALBUTEROL [Concomitant]
  5. PREDNISON [Concomitant]
  6. IRON [Concomitant]
  7. ASCORBIC ACID [Concomitant]

REACTIONS (1)
  - HAEMOLYTIC ANAEMIA [None]
